FAERS Safety Report 5298602-6 (Version None)
Quarter: 2007Q2

REPORT INFORMATION
  Report Type: 
  Country: None (occurrence: None)
  Receive Date: 20070417
  Receipt Date: 20070404
  Transmission Date: 20071010
  Serious: Yes (Hospitalization, Other)
  Sender: FDA-Public Use
  Company Number: US-BAYER-200712052GDS

PATIENT
  Age: 74 Year
  Sex: Female

DRUGS (6)
  1. ASPIRIN [Suspect]
     Indication: DRUG USE FOR UNKNOWN INDICATION
     Route: 065
  2. ENOXAPARIN SODIUM [Suspect]
     Route: 065
  3. EPOETIN [Concomitant]
     Indication: ANAEMIA
     Route: 030
  4. GEFITINIB [Concomitant]
     Indication: NEOPLASM MALIGNANT
     Route: 065
  5. WARFARIN SODIUM [Concomitant]
     Indication: DRUG USE FOR UNKNOWN INDICATION
     Route: 065
  6. PREDNISONE TAB [Concomitant]
     Indication: CHRONIC OBSTRUCTIVE PULMONARY DISEASE
     Route: 065

REACTIONS (3)
  - COMPARTMENT SYNDROME [None]
  - HAEMATOMA EVACUATION [None]
  - RADIAL NERVE PALSY [None]
